FAERS Safety Report 7593016-8 (Version None)
Quarter: 2011Q3

REPORT INFORMATION
  Report Type: 
  Country: None (occurrence: None)
  Receive Date: 20110706
  Receipt Date: 20110630
  Transmission Date: 20111222
  Serious: Yes (Life-Threatening)
  Sender: FDA-Public Use
  Company Number: JP-GLAXOSMITHKLINE-B0730415A

PATIENT
  Sex: Male
  Weight: 93 kg

DRUGS (23)
  1. BIOFERMIN R [Concomitant]
     Dosage: 3IUAX PER DAY
     Route: 048
     Dates: end: 20070821
  2. FUROSEMIDE [Concomitant]
     Dosage: 80MG PER DAY
     Route: 042
     Dates: end: 20070916
  3. ALKERAN [Suspect]
     Indication: STEM CELL TRANSPLANT
     Dosage: 140MGM2 PER DAY
     Route: 042
     Dates: start: 20070728, end: 20070728
  4. CYMERIN [Concomitant]
     Indication: STEM CELL TRANSPLANT
     Dosage: 200MGM2 PER DAY
     Route: 042
     Dates: start: 20070723, end: 20070723
  5. ZOLPIDEM [Concomitant]
     Dosage: 5MG PER DAY
     Route: 048
     Dates: end: 20070825
  6. LIVALO [Concomitant]
     Dosage: 2MG PER DAY
     Route: 048
     Dates: end: 20070821
  7. RABEPRAZOLE SODIUM [Concomitant]
     Dosage: 10MG PER DAY
     Route: 048
     Dates: end: 20070925
  8. TEGRETOL [Concomitant]
     Dosage: .2MG PER DAY
     Route: 048
     Dates: end: 20070821
  9. MAGMITT [Concomitant]
     Dosage: 1500MG PER DAY
     Route: 048
     Dates: end: 20070729
  10. KYTRIL [Concomitant]
     Dosage: 4IUAX PER DAY
     Route: 042
     Dates: end: 20070927
  11. SULFAMETHOXAZOLE [Concomitant]
     Dosage: 4IUAX PER DAY
     Route: 048
     Dates: end: 20070926
  12. LAC B [Concomitant]
     Dosage: 3G PER DAY
     Route: 048
     Dates: end: 20070729
  13. MUCODYNE [Concomitant]
     Dosage: 1500MG PER DAY
     Route: 048
     Dates: end: 20071010
  14. ETOPOSIDE [Concomitant]
     Indication: STEM CELL TRANSPLANT
     Dosage: 200MGM2 PER DAY
     Route: 042
     Dates: start: 20070724, end: 20070727
  15. LOXONIN [Concomitant]
     Dosage: 60MG PER DAY
     Route: 048
     Dates: end: 20070825
  16. SELBEX [Concomitant]
     Dosage: 150MG PER DAY
     Route: 048
     Dates: end: 20070821
  17. MAXIPIME [Concomitant]
     Dosage: 4G PER DAY
     Route: 042
     Dates: end: 20071009
  18. ATARAX [Concomitant]
     Dosage: 25MG PER DAY
     Dates: end: 20071012
  19. CYTARABINE [Concomitant]
     Indication: STEM CELL TRANSPLANT
     Dosage: 400MGM2 PER DAY
     Route: 042
     Dates: start: 20070724, end: 20070727
  20. DIFLUCAN [Concomitant]
     Dosage: 200MG PER DAY
     Route: 048
     Dates: end: 20070919
  21. CIPROFLOXACIN HCL [Concomitant]
     Dosage: 600MG PER DAY
     Route: 048
     Dates: end: 20070926
  22. ZOVIRAX [Concomitant]
     Dosage: 1000MG PER DAY
     Route: 048
     Dates: end: 20071010
  23. SAXIZON [Concomitant]
     Dosage: 400MG PER DAY
     Route: 042
     Dates: end: 20071016

REACTIONS (3)
  - RESPIRATORY FAILURE [None]
  - PNEUMONIA [None]
  - VIRAL INFECTION [None]
